FAERS Safety Report 4357375-1 (Version None)
Quarter: 2004Q2

REPORT INFORMATION
  Report Type: 
  Country: None (occurrence: None)
  Receive Date: 20040510
  Receipt Date: 20040422
  Transmission Date: 20050107
  Serious: Yes (Hospitalization)
  Sender: FDA-Public Use
  Company Number: DSA_24301_2004

PATIENT
  Age: 40 Year
  Sex: Female

DRUGS (2)
  1. LORAZEPAM [Suspect]
     Dosage: 50 MG ONCE PO
     Route: 048
     Dates: start: 20040417, end: 20040417
  2. BEER [Suspect]
     Dosage: 2 BOTTLE ONCE PO
     Route: 048
     Dates: start: 20040417, end: 20040417

REACTIONS (5)
  - ALCOHOL USE [None]
  - FATIGUE [None]
  - INTENTIONAL OVERDOSE [None]
  - MYDRIASIS [None]
  - RESPIRATORY DEPRESSION [None]
